FAERS Safety Report 12121731 (Version 1)
Quarter: 2016Q1

REPORT INFORMATION
  Report Type: Spontaneous
  Country: US (occurrence: US)
  Receive Date: 20160226
  Receipt Date: 20160226
  Transmission Date: 20160526
  Serious: No
  Sender: FDA-Public Use
  Company Number: US-ALLERGAN-1210305US

PATIENT
  Age: 75 Year
  Sex: Female

DRUGS (4)
  1. REFRESH OPTIVE [Suspect]
     Active Substance: CARBOXYMETHYLCELLULOSE SODIUM\GLYCERIN
     Indication: DRY EYE
     Dosage: UNK
     Route: 047
     Dates: start: 201207, end: 20120725
  2. ERYTHROMYCIN OINTMENT [Concomitant]
     Active Substance: ERYTHROMYCIN
     Indication: PROPHYLAXIS
     Dosage: UNK
  3. EYE OINTMENT [Concomitant]
     Indication: DRY EYE
  4. INHALERS [Concomitant]
     Active Substance: UNSPECIFIED INGREDIENT
     Indication: LUNG DISORDER

REACTIONS (2)
  - Ocular hyperaemia [Unknown]
  - Eye pain [Unknown]
